FAERS Safety Report 17326370 (Version 3)
Quarter: 2020Q3

REPORT INFORMATION
  Report Type: Spontaneous
  Country: US (occurrence: US)
  Receive Date: 20200127
  Receipt Date: 20200702
  Transmission Date: 20201102
  Serious: Yes (Other)
  Sender: FDA-Public Use
  Company Number: US-PFIZER INC-2018404599

PATIENT
  Age: 67 Year
  Sex: Male
  Weight: 82.55 kg

DRUGS (2)
  1. CAVERJECT [Suspect]
     Active Substance: ALPROSTADIL
     Indication: LIBIDO DISORDER
     Dosage: 20 UG, UNK
  2. CAVERJECT [Suspect]
     Active Substance: ALPROSTADIL
     Dosage: 40 UG (1 ML) VIAL, 1 CARTRIDGE Q (EVERY) 24 HOURS PRN (AS NEEDED)
     Route: 017

REACTIONS (3)
  - Bradykinesia [Unknown]
  - Hypoacusis [Unknown]
  - Diabetes mellitus [Unknown]
